FAERS Safety Report 24721931 (Version 1)
Quarter: 2024Q4

REPORT INFORMATION
  Report Type: Spontaneous
  Country: US (occurrence: None)
  Receive Date: 20241210
  Receipt Date: 20241210
  Transmission Date: 20250115
  Serious: Yes (Hospitalization, Disabling, Other)
  Sender: Public
  Company Number: None

PATIENT
  Age: 29 Year
  Sex: Female
  Weight: 53.1 kg

DRUGS (2)
  1. PROCHLORPERAZINE [Suspect]
     Active Substance: PROCHLORPERAZINE
     Indication: Migraine
     Dates: start: 20241108, end: 20241108
  2. BENADRYL [Suspect]
     Active Substance: DIPHENHYDRAMINE HYDROCHLORIDE

REACTIONS (15)
  - Heart rate increased [None]
  - Dysphagia [None]
  - Feeling abnormal [None]
  - Speech disorder [None]
  - Bradyphrenia [None]
  - Gait disturbance [None]
  - Depression [None]
  - Anxiety [None]
  - Loss of personal independence in daily activities [None]
  - Product communication issue [None]
  - Transient ischaemic attack [None]
  - Artery dissection [None]
  - Nervous system disorder [None]
  - Visual impairment [None]
  - Quality of life decreased [None]

NARRATIVE: CASE EVENT DATE: 20241108
